FAERS Safety Report 9911953 (Version 1)
Quarter: 2014Q1

REPORT INFORMATION
  Report Type: Spontaneous
  Country: US (occurrence: US)
  Receive Date: 20140219
  Receipt Date: 20140219
  Transmission Date: 20141002
  Serious: No
  Sender: FDA-Public Use
  Company Number: US-MYLANLABS-2013S1024019

PATIENT
  Age: 70 Year
  Sex: Female
  Weight: 84.82 kg

DRUGS (1)
  1. EPIPEN [Suspect]
     Indication: HYPERSENSITIVITY
     Route: 030

REACTIONS (5)
  - Drug ineffective [Recovered/Resolved]
  - Hypersensitivity [Recovered/Resolved]
  - Blood pressure increased [Recovered/Resolved]
  - Injection site haemorrhage [Recovered/Resolved]
  - Expired drug administered [Recovered/Resolved]
